FAERS Safety Report 9868227 (Version 2)
Quarter: 2014Q1

REPORT INFORMATION
  Report Type: Spontaneous
  Country: US (occurrence: US)
  Receive Date: 20140204
  Receipt Date: 20140305
  Transmission Date: 20141002
  Serious: Yes (Death)
  Sender: FDA-Public Use
  Company Number: US-ROXANE LABORATORIES, INC.-2014-RO-00156RO

PATIENT
  Sex: Female

DRUGS (4)
  1. MORPHINE [Suspect]
     Indication: PAIN
     Route: 065
  2. OXYCONTIN [Suspect]
     Indication: PAIN
     Route: 065
  3. BENZODIAZEPINES [Suspect]
     Indication: PAIN
     Route: 065
  4. ALCOHOL [Suspect]
     Indication: PRODUCT USED FOR UNKNOWN INDICATION
     Route: 048

REACTIONS (1)
  - Overdose [Fatal]
